FAERS Safety Report 10983346 (Version 7)
Quarter: 2016Q3

REPORT INFORMATION
  Report Type: Spontaneous
  Country: US (occurrence: US)
  Receive Date: 20150403
  Receipt Date: 20160721
  Transmission Date: 20161109
  Serious: Yes (Other)
  Sender: FDA-Public Use
  Company Number: US-009507513-1504USA001185

PATIENT
  Sex: Male
  Weight: 98.87 kg

DRUGS (1)
  1. PROSCAR [Suspect]
     Active Substance: FINASTERIDE
     Indication: ALOPECIA
     Dosage: 1.25 MG, QD
     Route: 048
     Dates: start: 20030317, end: 200408

REACTIONS (27)
  - Rotator cuff repair [Unknown]
  - Penis disorder [Unknown]
  - Hypogonadism [Unknown]
  - Pollakiuria [Unknown]
  - Sleep disorder [Unknown]
  - Dysuria [Unknown]
  - Psychogenic erectile dysfunction [Not Recovered/Not Resolved]
  - Libido decreased [Recovered/Resolved]
  - Dyspnoea [Unknown]
  - Memory impairment [Not Recovered/Not Resolved]
  - Cognitive disorder [Not Recovered/Not Resolved]
  - Fatigue [Not Recovered/Not Resolved]
  - Scrotal disorder [Unknown]
  - Micturition urgency [Unknown]
  - Carpal tunnel decompression [Unknown]
  - Drug administration error [Unknown]
  - Wrong technique in product usage process [Unknown]
  - Nocturia [Not Recovered/Not Resolved]
  - Glucose urine present [Unknown]
  - Anxiety [Not Recovered/Not Resolved]
  - Aphthous ulcer [Not Recovered/Not Resolved]
  - Depression [Not Recovered/Not Resolved]
  - Sexual dysfunction [Not Recovered/Not Resolved]
  - Semen volume decreased [Unknown]
  - Arthralgia [Not Recovered/Not Resolved]
  - Vasectomy [Unknown]
  - Arthroscopy [Unknown]

NARRATIVE: CASE EVENT DATE: 200303
